FAERS Safety Report 16092907 (Version 3)
Quarter: 2019Q4

REPORT INFORMATION
  Report Type: Report from Study
  Country: None (occurrence: US)
  Receive Date: 20190320
  Receipt Date: 20191219
  Transmission Date: 20200122
  Serious: Yes (Hospitalization, Other)
  Sender: FDA-Public Use
  Company Number: US-ABBVIE-19K-163-2659593-00

PATIENT
  Age: 76 Year
  Sex: Female

DRUGS (2)
  1. HUMIRA [Suspect]
     Active Substance: ADALIMUMAB
     Route: 058
     Dates: start: 2019
  2. HUMIRA [Suspect]
     Active Substance: ADALIMUMAB
     Indication: RHEUMATOID ARTHRITIS
     Route: 058
     Dates: start: 20181204

REACTIONS (15)
  - Scoliosis [Unknown]
  - Depression [Unknown]
  - Nasopharyngitis [Unknown]
  - Arthralgia [Recovering/Resolving]
  - Clavicle fracture [Unknown]
  - Joint range of motion decreased [Unknown]
  - Gait disturbance [Unknown]
  - Discomfort [Unknown]
  - Arthralgia [Unknown]
  - Joint stiffness [Unknown]
  - Loss of personal independence in daily activities [Not Recovered/Not Resolved]
  - Anxiety [Unknown]
  - Musculoskeletal pain [Unknown]
  - Pain [Unknown]
  - Fall [Unknown]

NARRATIVE: CASE EVENT DATE: 2019
